FAERS Safety Report 11361701 (Version 4)
Quarter: 2016Q2

REPORT INFORMATION
  Report Type: Report from Study
  Country: US (occurrence: US)
  Receive Date: 20150810
  Receipt Date: 20160401
  Transmission Date: 20160815
  Serious: Yes (Other)
  Sender: FDA-Public Use
  Company Number: PHHY2014US112545

PATIENT
  Age: 67 Year
  Sex: Female

DRUGS (1)
  1. GILENYA [Suspect]
     Active Substance: FINGOLIMOD HYDROCHLORIDE
     Indication: MULTIPLE SCLEROSIS
     Dosage: UNK
     Route: 048

REACTIONS (30)
  - Muscular weakness [Unknown]
  - Urinary incontinence [Unknown]
  - Urinary tract infection [Recovered/Resolved]
  - Gastrooesophageal reflux disease [Not Recovered/Not Resolved]
  - Peroneal nerve palsy [Not Recovered/Not Resolved]
  - Blood glucose increased [Recovered/Resolved]
  - Blepharospasm [Recovered/Resolved]
  - Oral candidiasis [Recovered/Resolved]
  - Pharyngitis [Recovered/Resolved]
  - Lymphocyte count decreased [Not Recovered/Not Resolved]
  - Weight increased [Recovered/Resolved]
  - Urinary tract infection [Recovered/Resolved]
  - Multiple sclerosis relapse [Unknown]
  - Restless legs syndrome [Recovered/Resolved]
  - Aphasia [Not Recovered/Not Resolved]
  - Dysarthria [Not Recovered/Not Resolved]
  - Blood creatinine increased [Recovered/Resolved]
  - Fatigue [Unknown]
  - Vision blurred [Recovered/Resolved]
  - Urinary tract infection [Recovered/Resolved]
  - Tremor [Not Recovered/Not Resolved]
  - Mood swings [Not Recovered/Not Resolved]
  - Hypertension [Not Recovered/Not Resolved]
  - Lhermitte^s sign [Recovered/Resolved]
  - Balance disorder [Unknown]
  - Anal incontinence [Unknown]
  - Gait disturbance [Not Recovered/Not Resolved]
  - Hypotension [Recovered/Resolved]
  - Dysphagia [Unknown]
  - Blood urea increased [Not Recovered/Not Resolved]

NARRATIVE: CASE EVENT DATE: 20140522
